FAERS Safety Report 18252218 (Version 1)
Quarter: 2020Q3

REPORT INFORMATION
  Report Type: Spontaneous
  Country: US (occurrence: US)
  Receive Date: 20200910
  Receipt Date: 20200910
  Transmission Date: 20201103
  Serious: No
  Sender: FDA-Public Use
  Company Number: US-FARMAPROD-202005-0699

PATIENT
  Sex: Female

DRUGS (1)
  1. OXERVATE [Suspect]
     Active Substance: CENEGERMIN-BKBJ
     Indication: KERATITIS
     Route: 047
     Dates: start: 202005

REACTIONS (5)
  - Eyelid irritation [Unknown]
  - Erythema of eyelid [Unknown]
  - Vision blurred [Not Recovered/Not Resolved]
  - Erythropsia [Not Recovered/Not Resolved]
  - Eye pain [Not Recovered/Not Resolved]
